FAERS Safety Report 23371805 (Version 2)
Quarter: 2024Q4

REPORT INFORMATION
  Report Type: Other
  Country: BE (occurrence: BE)
  Receive Date: 20240105
  Receipt Date: 20241024
  Transmission Date: 20250114
  Serious: Yes (Death, Other)
  Sender: BIOCON
  Company Number: BE-ROCHE-3292532

PATIENT

DRUGS (27)
  1. TRASTUZUMAB [Suspect]
     Active Substance: TRASTUZUMAB
     Indication: Oesophageal cancer metastatic
     Dosage: 6 MG/KG, Q3W (SOLUTION FOR INFUSION)
     Route: 042
     Dates: start: 201801
  2. TRASTUZUMAB [Suspect]
     Active Substance: TRASTUZUMAB
     Indication: Metastases to liver
     Dosage: 8 MG/KG, Q3W (SOLUTION FOR INFUSION)
     Route: 042
     Dates: start: 201801
  3. TRASTUZUMAB [Suspect]
     Active Substance: TRASTUZUMAB
     Indication: Oesophageal adenocarcinoma
     Dosage: 8 MG/KG
     Route: 065
     Dates: start: 201801
  4. TRASTUZUMAB [Suspect]
     Active Substance: TRASTUZUMAB
     Indication: Metastasis
     Dosage: 8 MILLIGRAM, Q3W (LOADING DOSE,SOLUTION FOR INFUSION)
     Route: 042
     Dates: start: 201808
  5. TRASTUZUMAB [Suspect]
     Active Substance: TRASTUZUMAB
     Indication: Metastases to lymph nodes
     Dosage: 6 MG/KG, Q3W, (SOLUTION FOR INFUSION)
     Route: 042
     Dates: start: 201801
  6. OXALIPLATIN [Suspect]
     Active Substance: OXALIPLATIN
     Indication: Oesophageal adenocarcinoma
     Dosage: 130 MG/M2, Q3W (390 MG/SQ.METER,QW)
     Route: 065
     Dates: start: 201801
  7. OXALIPLATIN [Suspect]
     Active Substance: OXALIPLATIN
     Indication: Metastases to liver
     Dosage: 130 MILLIGRAM/SQ. METER
     Route: 065
     Dates: start: 201801, end: 2018
  8. OXALIPLATIN [Suspect]
     Active Substance: OXALIPLATIN
     Indication: Oesophageal cancer metastatic
     Dosage: 130 MILLIGRAM/SQ. METER
     Route: 065
     Dates: start: 201808
  9. OXALIPLATIN [Suspect]
     Active Substance: OXALIPLATIN
     Indication: Metastasis
     Dosage: 390 MILLIGRAM/SQ. METER, QW, 390 MG/SQ.METER,QW,(130 MILLIGRAM/SQ. METER, Q3W)
     Route: 065
     Dates: start: 201801
  10. OXALIPLATIN [Suspect]
     Active Substance: OXALIPLATIN
     Indication: Metastases to lymph nodes
  11. CAPECITABINE [Suspect]
     Active Substance: CAPECITABINE
     Indication: Oesophageal adenocarcinoma
     Dosage: 2000 MG/M2, QD,1000 MG/M2,2X/D
     Route: 065
     Dates: start: 201801
  12. CAPECITABINE [Suspect]
     Active Substance: CAPECITABINE
     Indication: Metastases to liver
     Dosage: 1000 MILLIGRAM/SQ. METER, BID (FOR 14 DAYS)
     Route: 065
     Dates: start: 201808
  13. CAPECITABINE [Suspect]
     Active Substance: CAPECITABINE
     Indication: Oesophageal cancer metastatic
     Dosage: 1000 MILLIGRAM/SQ. METER
     Route: 065
     Dates: start: 201801, end: 2018
  14. CAPECITABINE [Suspect]
     Active Substance: CAPECITABINE
     Indication: Metastasis
  15. CAPECITABINE [Suspect]
     Active Substance: CAPECITABINE
     Indication: Metastases to lymph nodes
  16. NIVOLUMAB [Concomitant]
     Active Substance: NIVOLUMAB
     Indication: Oesophageal adenocarcinoma
     Dosage: 3 MG/KG, Q2W
     Route: 065
     Dates: start: 2018
  17. NIVOLUMAB [Concomitant]
     Active Substance: NIVOLUMAB
     Indication: Metastasis
     Dosage: 3 MILLIGRAM/KILOGRAM, Q2W
     Route: 065
  18. NIVOLUMAB [Concomitant]
     Active Substance: NIVOLUMAB
     Indication: Metastases to lymph nodes
  19. NIVOLUMAB [Concomitant]
     Active Substance: NIVOLUMAB
     Indication: Metastases to liver
  20. RAMUCIRUMAB [Concomitant]
     Active Substance: RAMUCIRUMAB
     Indication: Oesophageal adenocarcinoma
     Dosage: UNK
     Route: 065
  21. RAMUCIRUMAB [Concomitant]
     Active Substance: RAMUCIRUMAB
     Indication: Metastasis
  22. RAMUCIRUMAB [Concomitant]
     Active Substance: RAMUCIRUMAB
     Indication: Metastases to lymph nodes
  23. RAMUCIRUMAB [Concomitant]
     Active Substance: RAMUCIRUMAB
     Indication: Metastases to liver
  24. PACLITAXEL [Concomitant]
     Active Substance: PACLITAXEL
     Indication: Oesophageal adenocarcinoma
     Dosage: UNK
     Route: 065
  25. PACLITAXEL [Concomitant]
     Active Substance: PACLITAXEL
     Indication: Metastasis
  26. PACLITAXEL [Concomitant]
     Active Substance: PACLITAXEL
     Indication: Metastases to lymph nodes
  27. PACLITAXEL [Concomitant]
     Active Substance: PACLITAXEL
     Indication: Metastases to liver

REACTIONS (9)
  - Death [Fatal]
  - Adenocarcinoma metastatic [Fatal]
  - Drug ineffective [Fatal]
  - Neuropathy peripheral [Unknown]
  - Disease progression [Unknown]
  - Dysphagia [Unknown]
  - Drug intolerance [Unknown]
  - Therapy partial responder [Unknown]
  - Off label use [Unknown]

NARRATIVE: CASE EVENT DATE: 20180101
